FAERS Safety Report 4930877-2 (Version None)
Quarter: 2006Q1

REPORT INFORMATION
  Report Type: 
  Country: None (occurrence: None)
  Receive Date: 20060227
  Receipt Date: 20060209
  Transmission Date: 20060701
  Serious: Yes (Disabling)
  Sender: FDA-Public Use
  Company Number: 2005-0008479

PATIENT
  Age: 28 Year
  Sex: Female

DRUGS (9)
  1. TENOFOVIR DISOPROXIL FUMARATE (TENOFOVIR DISOPROXIL FUMARATE) [Suspect]
     Indication: HIV INFECTION
     Dosage: ORAL
     Route: 048
     Dates: start: 20031124
  2. LAMIVUDINE [Suspect]
     Indication: HIV INFECTION
     Dates: start: 20031124
  3. ZIDOVUDINE [Suspect]
     Indication: HIV INFECTION
     Dates: start: 20031124
  4. ISONIAZID [Suspect]
     Indication: PULMONARY TUBERCULOSIS
  5. STREPTOMYCIN (STREPTOMYCIN /00051001/) [Concomitant]
  6. PYRAZINAMIDE [Concomitant]
  7. ETHAMBUTOL (ETHAMBUTOL /00022301/) [Concomitant]
  8. RIFAMPICIN [Concomitant]
  9. PYRIDOXINE (PYRIDOXINE /00058901/) [Concomitant]

REACTIONS (6)
  - ABSCESS [None]
  - JOINT RANGE OF MOTION DECREASED [None]
  - MYALGIA [None]
  - MYOPATHY [None]
  - PAIN [None]
  - SHOULDER PAIN [None]
